FAERS Safety Report 21222407 (Version 1)
Quarter: 2022Q3

REPORT INFORMATION
  Report Type: Spontaneous
  Country: US (occurrence: None)
  Receive Date: 20220816
  Receipt Date: 20220816
  Transmission Date: 20221027
  Serious: No
  Sender: FDA-Public Use
  Company Number: None

PATIENT
  Age: 46 Year
  Sex: Male
  Weight: 83.91 kg

DRUGS (1)
  1. SKYRIZI [Suspect]
     Active Substance: RISANKIZUMAB-RZAA
     Indication: Psoriasis
     Dosage: FREQUENCY : AS DIRECTED;?INJECT 150MG SUBCUTANEOUSLY (1 PEN) SUBCUTANEOUSLY?AT WEEK O AND WEEK 4 AS
     Route: 058
     Dates: start: 202106

REACTIONS (1)
  - COVID-19 [None]
